FAERS Safety Report 9933314 (Version 2)
Quarter: 2014Q1

REPORT INFORMATION
  Report Type: Spontaneous
  Country: US (occurrence: US)
  Receive Date: 20140228
  Receipt Date: 20140228
  Transmission Date: 20141002
  Serious: No
  Sender: FDA-Public Use
  Company Number: US-ABBVIE-13P-163-1175235-00

PATIENT
  Age: 81 Year
  Sex: Male
  Weight: 79.45 kg

DRUGS (1)
  1. ANDROGEL [Suspect]
     Indication: PRODUCT USED FOR UNKNOWN INDICATION
     Dosage: 1 PACKET DAILY
     Route: 061
     Dates: start: 201210, end: 20131201

REACTIONS (7)
  - Oedema peripheral [Not Recovered/Not Resolved]
  - Weight increased [Not Recovered/Not Resolved]
  - Blood testosterone increased [Recovered/Resolved]
  - Blood testosterone abnormal [Not Recovered/Not Resolved]
  - Drug administered at inappropriate site [Not Recovered/Not Resolved]
  - Penis disorder [Not Recovered/Not Resolved]
  - Blood urea increased [Not Recovered/Not Resolved]
